FAERS Safety Report 8440074-4 (Version None)
Quarter: 2012Q2

REPORT INFORMATION
  Report Type: 
  Country: None (occurrence: None)
  Receive Date: 20120608
  Receipt Date: 20120524
  Transmission Date: 20120825
  Serious: No
  Sender: FDA-Public Use
  Company Number: 2012MPI00110

PATIENT
  Age: 27 Year
  Sex: Male

DRUGS (1)
  1. BRENTUXIMAB VEDOTIN (BRENTUXIMAB VEDOTIN) INJECTION [Suspect]
     Indication: HODGKIN'S DISEASE
     Dosage: 145 MG, QCYCLE, INTRAVENOUS
     Route: 042
     Dates: start: 20120116, end: 20120410

REACTIONS (1)
  - GRIP STRENGTH DECREASED [None]
